FAERS Safety Report 20719760 (Version 1)
Quarter: 2022Q2

REPORT INFORMATION
  Report Type: Spontaneous
  Country: None (occurrence: JP)
  Receive Date: 20220418
  Receipt Date: 20220418
  Transmission Date: 20220720
  Serious: Yes (Other)
  Sender: FDA-Public Use
  Company Number: JP-MLV Pharma LLC-2127854

PATIENT
  Age: 72 Year
  Sex: Male

DRUGS (1)
  1. BETAMETHASONE DIPROPIONATE [Suspect]
     Active Substance: BETAMETHASONE DIPROPIONATE
     Indication: Dural arteriovenous fistula

REACTIONS (1)
  - Condition aggravated [Recovered/Resolved]
